FAERS Safety Report 21879942 (Version 1)
Quarter: 2023Q1

REPORT INFORMATION
  Report Type: Spontaneous
  Country: US (occurrence: None)
  Receive Date: 20230117
  Receipt Date: 20230117
  Transmission Date: 20230417
  Serious: Yes (Hospitalization)
  Sender: FDA-Public Use
  Company Number: None

PATIENT
  Age: 41 Year
  Sex: Female
  Weight: 80 kg

DRUGS (1)
  1. KISQALI [Suspect]
     Active Substance: RIBOCICLIB
     Indication: Breast cancer recurrent
     Dosage: FREQUENCY : DAILY;?
     Route: 048
     Dates: start: 20220312, end: 20221215

REACTIONS (14)
  - Pulmonary embolism [None]
  - Acute respiratory failure [None]
  - Therapy interrupted [None]
  - Lung consolidation [None]
  - Pulmonary septal thickening [None]
  - Pleural thickening [None]
  - Pulmonary mass [None]
  - Pleural effusion [None]
  - Metastases to lung [None]
  - Metastatic neoplasm [None]
  - Lymphadenopathy [None]
  - Metastases to spine [None]
  - Metastases to bone [None]
  - Vertebral lesion [None]

NARRATIVE: CASE EVENT DATE: 20221215
